FAERS Safety Report 18559353 (Version 1)
Quarter: 2020Q4

REPORT INFORMATION
  Report Type: Spontaneous
  Country: US (occurrence: US)
  Receive Date: 20201130
  Receipt Date: 20201130
  Transmission Date: 20210114
  Serious: No
  Sender: FDA-Public Use
  Company Number: US-JNJFOC-20201137976

PATIENT
  Age: 11 Year
  Sex: Male

DRUGS (6)
  1. FOCALIN [Concomitant]
     Active Substance: DEXMETHYLPHENIDATE HYDROCHLORIDE
     Indication: ATTENTION DEFICIT HYPERACTIVITY DISORDER
     Route: 065
  2. TOPAMAX [Suspect]
     Active Substance: TOPIRAMATE
     Route: 048
     Dates: start: 202009
  3. LAMICTAL [Concomitant]
     Active Substance: LAMOTRIGINE
     Indication: SEIZURE PROPHYLAXIS
     Route: 065
  4. ZYRTEC [Concomitant]
     Active Substance: CETIRIZINE HYDROCHLORIDE
     Indication: MULTIPLE ALLERGIES
     Route: 065
  5. TOPAMAX [Suspect]
     Active Substance: TOPIRAMATE
     Indication: SEIZURE
     Dosage: 200MG 2X DAILY AT MAXIMUM; TAPERED TO AS LOW AS 50MG 2X DAILY.
     Route: 048
     Dates: start: 201611, end: 202008
  6. CLONAZEPAM. [Concomitant]
     Active Substance: CLONAZEPAM
     Indication: SEIZURE PROPHYLAXIS
     Route: 065

REACTIONS (3)
  - Aggression [Recovered/Resolved]
  - Mood swings [Recovered/Resolved]
  - Blood creatinine increased [Recovered/Resolved]

NARRATIVE: CASE EVENT DATE: 201611
